FAERS Safety Report 11224844 (Version 1)
Quarter: 2015Q2

REPORT INFORMATION
  Report Type: Spontaneous
  Country: US (occurrence: US)
  Receive Date: 20150629
  Receipt Date: 20150629
  Transmission Date: 20150821
  Serious: No
  Sender: FDA-Public Use
  Company Number: US-B.I. PHARMACEUTICALS,INC./RIDGEFIELD-2015-BI-32464BP

PATIENT
  Age: 75 Year
  Sex: Female

DRUGS (3)
  1. ZANTAC MAXIMUM STRENGTH 150 COOL MINT [Suspect]
     Active Substance: RANITIDINE HYDROCHLORIDE
     Indication: DYSPEPSIA
     Dosage: DAILY DOSE: 150MG AS REQUIRED
     Route: 048
     Dates: start: 2013
  2. ALPRAZOLAM. [Concomitant]
     Active Substance: ALPRAZOLAM
     Indication: ANXIETY
     Dosage: 1 MG
     Route: 048
     Dates: start: 2013
  3. ZANTAC MAXIMUM STRENGTH 150 COOL MINT [Suspect]
     Active Substance: RANITIDINE HYDROCHLORIDE
     Indication: DYSPEPSIA

REACTIONS (1)
  - Drug ineffective [Not Recovered/Not Resolved]

NARRATIVE: CASE EVENT DATE: 20150616
